FAERS Safety Report 20996615 (Version 1)
Quarter: 2022Q2

REPORT INFORMATION
  Report Type: Spontaneous
  Country: FR (occurrence: FR)
  Receive Date: 20220623
  Receipt Date: 20220623
  Transmission Date: 20220721
  Serious: Yes (Other)
  Sender: FDA-Public Use
  Company Number: ALC2022FR002843

PATIENT

DRUGS (2)
  1. MIOSTAT [Suspect]
     Active Substance: CARBACHOL
     Indication: Miosis
     Dosage: INJECTION
     Route: 047
  2. MIOCHOL [Suspect]
     Active Substance: ACETYLCHOLINE CHLORIDE
     Indication: Miosis
     Dosage: POWDER AND SOLVENT FOR INTRA-OCULAR SOLUTION (INTRACAMERAL INJECTION)
     Route: 047

REACTIONS (1)
  - Anterior chamber fibrin [Unknown]
